FAERS Safety Report 8838171 (Version 2)
Quarter: 2015Q1

REPORT INFORMATION
  Report Type: Report from Study
  Country: US (occurrence: US)
  Receive Date: 20121012
  Receipt Date: 20150206
  Transmission Date: 20150721
  Serious: Yes (Other)
  Sender: FDA-Public Use
  Company Number: US-ROCHE-1141613

PATIENT
  Sex: Male
  Weight: 9.7 kg

DRUGS (8)
  1. NUTROPIN AQ [Suspect]
     Active Substance: SOMATROPIN
     Indication: CHRONIC KIDNEY DISEASE
     Route: 058
     Dates: start: 200012
  2. FER IN SOL [Concomitant]
     Dosage: 0.9 CC BID
     Route: 048
  3. NUTROPIN AQ [Suspect]
     Active Substance: SOMATROPIN
     Indication: FAILURE TO THRIVE
     Route: 058
  4. NUTROPIN AQ [Suspect]
     Active Substance: SOMATROPIN
     Route: 058
  5. FER IN SOL [Concomitant]
     Dosage: 1.2 CC BID
     Route: 048
  6. FOLATE [Concomitant]
     Active Substance: FOLATE SODIUM
     Route: 065
  7. NUTROPIN AQ [Suspect]
     Active Substance: SOMATROPIN
     Route: 058
  8. PROCRIT [Concomitant]
     Active Substance: ERYTHROPOIETIN
     Dosage: 1000 UNITS
     Route: 058

REACTIONS (5)
  - Liver function test abnormal [Unknown]
  - Vomiting [Unknown]
  - Penile discharge [Unknown]
  - Decreased appetite [Unknown]
  - Weight decreased [Unknown]
